FAERS Safety Report 25749385 (Version 3)
Quarter: 2025Q3

REPORT INFORMATION
  Report Type: Report from Study
  Country: CA (occurrence: CA)
  Receive Date: 20250902
  Receipt Date: 20250911
  Transmission Date: 20251020
  Serious: Yes (Hospitalization, Other)
  Sender: CELLTRION
  Company Number: CA-CELLTRION INC.-2025CA030659

PATIENT

DRUGS (16)
  1. ADALIMUMAB [Suspect]
     Active Substance: ADALIMUMAB
     Indication: Polychondritis
     Route: 065
  2. ADALIMUMAB [Suspect]
     Active Substance: ADALIMUMAB
     Route: 065
  3. ADALIMUMAB [Suspect]
     Active Substance: ADALIMUMAB
     Route: 065
  4. RITUXIMAB [Suspect]
     Active Substance: RITUXIMAB
     Indication: Granulomatosis with polyangiitis
     Route: 042
  5. GOLIMUMAB [Suspect]
     Active Substance: GOLIMUMAB
     Indication: Product used for unknown indication
     Route: 065
  6. MYCOPHENOLATE MOFETIL [Suspect]
     Active Substance: MYCOPHENOLATE MOFETIL
     Indication: Vasculitis
     Route: 048
  7. ASPIRIN [Concomitant]
     Active Substance: ASPIRIN
  8. ACRIVASTINE [Concomitant]
     Active Substance: ACRIVASTINE
     Indication: Premedication
     Route: 048
  9. AMLODIPINE [Concomitant]
     Active Substance: AMLODIPINE BESYLATE
  10. CELECOXIB [Concomitant]
     Active Substance: CELECOXIB
  11. COLCHICINE [Concomitant]
     Active Substance: COLCHICINE
  12. METHYLPREDNISOLONE SODIUM SUCCINATE [Concomitant]
     Active Substance: METHYLPREDNISOLONE SODIUM SUCCINATE
     Indication: Premedication
     Route: 042
  13. PANTOPRAZOLE [Concomitant]
     Active Substance: PANTOPRAZOLE
  14. PREDNISONE [Concomitant]
     Active Substance: PREDNISONE
  15. TYLENOL [Concomitant]
     Active Substance: ACETAMINOPHEN
     Indication: Premedication
     Route: 048
  16. CHOLECALCIFEROL [Concomitant]
     Active Substance: CHOLECALCIFEROL

REACTIONS (13)
  - Panniculitis [Unknown]
  - Arthritis [Unknown]
  - Pain in extremity [Unknown]
  - Weight decreased [Unknown]
  - Peripheral swelling [Unknown]
  - Swelling [Unknown]
  - Vasculitis [Unknown]
  - Polychondritis [Unknown]
  - Abdominal distension [Unknown]
  - Chest pain [Unknown]
  - Illness [Unknown]
  - Abdominal pain upper [Unknown]
  - Intentional product use issue [Unknown]
